FAERS Safety Report 6684146-3 (Version None)
Quarter: 2010Q2

REPORT INFORMATION
  Report Type: 
  Country: None (occurrence: None)
  Receive Date: 20100416
  Receipt Date: 20100412
  Transmission Date: 20101027
  Serious: Yes (Hospitalization, Other)
  Sender: FDA-Public Use
  Company Number: US-ASTRAZENECA-2010SE15971

PATIENT
  Age: 66 Year
  Sex: Female
  Weight: 89.4 kg

DRUGS (13)
  1. SEROQUEL [Suspect]
     Indication: BIPOLAR DISORDER
     Route: 048
  2. ATENOLOL [Concomitant]
     Indication: NON-DIPPING
  3. OMEPRAZOLE [Concomitant]
     Dosage: 20 MG BID
  4. NITROGLYCERIN [Concomitant]
  5. LEVOTHYROXINE [Concomitant]
  6. PRAVASTATIN [Concomitant]
  7. FUROSEMIDE [Concomitant]
  8. PLAVIX [Concomitant]
  9. GLIPIZIDE [Concomitant]
  10. MECLIZINE [Concomitant]
     Dosage: 25 MG TID
  11. CLONAZEPAM [Concomitant]
     Dosage: 1MG TID
  12. HYDROCODONE BITARTRATE [Concomitant]
  13. LITHIUM [Concomitant]

REACTIONS (12)
  - AMNESIA [None]
  - DIABETES MELLITUS [None]
  - DRUG INEFFECTIVE [None]
  - GLOSSODYNIA [None]
  - HALLUCINATION [None]
  - KNEE OPERATION [None]
  - MOOD SWINGS [None]
  - NERVE INJURY [None]
  - OEDEMA PERIPHERAL [None]
  - SPEECH DISORDER [None]
  - TRANSIENT ISCHAEMIC ATTACK [None]
  - VISUAL IMPAIRMENT [None]
